FAERS Safety Report 11392835 (Version 2)
Quarter: 2015Q3

REPORT INFORMATION
  Report Type: Spontaneous
  Country: US (occurrence: US)
  Receive Date: 20150818
  Receipt Date: 20150828
  Transmission Date: 20151125
  Serious: No
  Sender: FDA-Public Use
  Company Number: ALCN2015US004860

PATIENT
  Sex: Female

DRUGS (2)
  1. TRIFLURIDINE. [Suspect]
     Active Substance: TRIFLURIDINE
     Indication: HERPES VIRUS INFECTION
     Dosage: 1 DF, UNK
     Route: 047
     Dates: start: 20150712
  2. ZADITOR [Suspect]
     Active Substance: KETOTIFEN FUMARATE
     Indication: PRODUCT USED FOR UNKNOWN INDICATION
     Dosage: UNK UNK, PRN
     Route: 047

REACTIONS (1)
  - Drug ineffective [Not Recovered/Not Resolved]
